FAERS Safety Report 5027392-7 (Version None)
Quarter: 2006Q2

REPORT INFORMATION
  Report Type: 
  Country: None (occurrence: None)
  Receive Date: 20060615
  Receipt Date: 20060606
  Transmission Date: 20061013
  Serious: Yes (Death)
  Sender: FDA-Public Use
  Company Number: CN-SANOFI-SYNTHELABO-A01200604269

PATIENT

DRUGS (1)
  1. STILNOX [Suspect]
     Indication: INSOMNIA
     Route: 048

REACTIONS (4)
  - DIARRHOEA [None]
  - HYPOCHLORAEMIA [None]
  - HYPONATRAEMIA [None]
  - RESPIRATORY FAILURE [None]
